FAERS Safety Report 17352889 (Version 1)
Quarter: 2020Q1

REPORT INFORMATION
  Report Type: Spontaneous
  Country: NL (occurrence: NL)
  Receive Date: 20200131
  Receipt Date: 20200131
  Transmission Date: 20200409
  Serious: Yes (Hospitalization)
  Sender: FDA-Public Use
  Company Number: NL-TEVA-2020-NL-1177505

PATIENT
  Sex: Male
  Weight: 70 kg

DRUGS (2)
  1. DOXIPINE [Concomitant]
     Dosage: 50 MG
  2. PREGABALINE [Suspect]
     Active Substance: PREGABALIN
     Indication: NEURALGIA
     Dosage: 150 MG (MILLIGRAM), 2 TIMES A DAY, 1
     Dates: start: 201912

REACTIONS (2)
  - Swelling of eyelid [Not Recovered/Not Resolved]
  - Peripheral swelling [Not Recovered/Not Resolved]
